FAERS Safety Report 9540477 (Version 3)
Quarter: 2013Q4

REPORT INFORMATION
  Report Type: Spontaneous
  Country: IT (occurrence: IT)
  Receive Date: 20130920
  Receipt Date: 20131122
  Transmission Date: 20140711
  Serious: Yes (Hospitalization)
  Sender: FDA-Public Use
  Company Number: PHHY2013IT103145

PATIENT
  Sex: Female

DRUGS (6)
  1. DIAZEPAM [Suspect]
     Indication: DEPRESSION
     Dosage: 20 ML, ONCE/SINGLE
     Route: 048
     Dates: start: 20130623, end: 20130623
  2. DIAZEPAM [Suspect]
     Dosage: 25 MG, BID
     Route: 048
  3. CITALOPRAM [Suspect]
     Indication: DEPRESSION
     Dosage: 560 MG, ONCE/SINGLE
     Route: 048
     Dates: start: 20130623, end: 20130623
  4. CITALOPRAM [Suspect]
     Dosage: 25 MG, BID
     Route: 048
  5. QUETIAPINE [Suspect]
     Indication: DEPRESSION
     Dosage: 4000 MG, ONCE/SINGLE
     Route: 048
     Dates: start: 20130623, end: 20130623
  6. QUETIAPINE [Suspect]
     Dosage: 25 MG, BID
     Route: 048

REACTIONS (3)
  - Suicide attempt [Recovering/Resolving]
  - Loss of consciousness [Recovering/Resolving]
  - Sopor [Recovering/Resolving]
